FAERS Safety Report 9796489 (Version 4)
Quarter: 2016Q2

REPORT INFORMATION
  Report Type: Report from Study
  Country: CA (occurrence: CA)
  Receive Date: 20140103
  Receipt Date: 20160607
  Transmission Date: 20160815
  Serious: Yes (Other)
  Sender: FDA-Public Use
  Company Number: CA-VIIV HEALTHCARE LIMITED-B0894150A

PATIENT
  Age: 32 Year
  Sex: Male
  Weight: 53 kg

DRUGS (30)
  1. MARAVIROC [Suspect]
     Active Substance: MARAVIROC
     Indication: HIV INFECTION
     Dosage: 1 DF, BID
     Route: 048
     Dates: start: 20120315, end: 20130508
  2. ENABLEX [Suspect]
     Active Substance: DARIFENACIN HYDROBROMIDE
     Indication: BLADDER CANCER
     Route: 048
     Dates: start: 20120605, end: 20130201
  3. OXYCOCET [Concomitant]
     Active Substance: ACETAMINOPHEN\OXYCODONE HYDROCHLORIDE
     Indication: PAIN
     Route: 048
     Dates: start: 20120327
  4. ATIVAN [Concomitant]
     Active Substance: LORAZEPAM
     Indication: PRODUCT USED FOR UNKNOWN INDICATION
  5. GABAPENTIN. [Concomitant]
     Active Substance: GABAPENTIN
     Indication: PRODUCT USED FOR UNKNOWN INDICATION
  6. KALETRA [Suspect]
     Active Substance: LOPINAVIR\RITONAVIR
     Indication: HIV INFECTION
     Dosage: 1 DF, 1D
     Route: 048
  7. INTELENCE [Concomitant]
     Active Substance: ETRAVIRINE
     Indication: PRODUCT USED FOR UNKNOWN INDICATION
  8. WELLBUTRIN [Concomitant]
     Active Substance: BUPROPION HYDROCHLORIDE
     Indication: PRODUCT USED FOR UNKNOWN INDICATION
  9. FLOXACILLIN SODIUM [Concomitant]
     Active Substance: FLUCLOXACILLIN SODIUM ANHYDROUS
  10. NORFLOXACIN [Concomitant]
     Active Substance: NORFLOXACIN
     Indication: ULCER
  11. TOLTERODINE TARTRATE. [Suspect]
     Active Substance: TOLTERODINE TARTRATE
     Indication: BLADDER CANCER
     Route: 048
     Dates: start: 20120605, end: 20130325
  12. TEPRENONE [Suspect]
     Active Substance: TEPRENONE
     Indication: BLADDER CANCER
     Route: 048
     Dates: start: 20121101, end: 20130115
  13. CYMBALTA [Suspect]
     Active Substance: DULOXETINE HYDROCHLORIDE
     Indication: CYSTITIS ULCERATIVE
  14. PENTOSAN POLYSULFATE SODIUM [Suspect]
     Active Substance: PENTOSAN POLYSULFATE SODIUM
     Indication: CYSTITIS
     Dosage: UNK UNK, BID
     Route: 048
  15. FLUCLOXACILLIN [Concomitant]
     Active Substance: FLUCLOXACILLIN
     Indication: PRODUCT USED FOR UNKNOWN INDICATION
  16. TOVIAZ [Suspect]
     Active Substance: FESOTERODINE FUMARATE
     Indication: CYSTITIS ULCERATIVE
     Dosage: 8 MG, 1D
     Route: 048
  17. TOVIAZ [Suspect]
     Active Substance: FESOTERODINE FUMARATE
     Indication: CYSTITIS ULCERATIVE
  18. PENTOSAN POLYSULFATE SODIUM [Suspect]
     Active Substance: PENTOSAN POLYSULFATE SODIUM
     Indication: POLLAKIURIA
  19. LOPINAVIR + RITONAVIR [Suspect]
     Active Substance: LOPINAVIR\RITONAVIR
     Indication: HIV INFECTION
     Dosage: 1 DF, UNK
     Route: 048
     Dates: start: 20120315
  20. CYMBALTA [Suspect]
     Active Substance: DULOXETINE HYDROCHLORIDE
     Indication: ULCER
  21. FLOXIN [Concomitant]
     Active Substance: OFLOXACIN
     Indication: PRODUCT USED FOR UNKNOWN INDICATION
  22. EMTRICITABINE/TENOFOVIR DISOPROXIL FUMARATE [Suspect]
     Active Substance: EMTRICITABINE\TENOFOVIR DISOPROXIL
     Indication: HIV INFECTION
     Dosage: 1 DF, 1D
     Route: 048
  23. TRUVADA [Suspect]
     Active Substance: EMTRICITABINE\TENOFOVIR DISOPROXIL FUMARATE
     Indication: HIV INFECTION
     Dosage: 200/300MG
     Route: 048
     Dates: start: 20120315, end: 20130508
  24. RALTEGRAVIR. [Suspect]
     Active Substance: RALTEGRAVIR
     Indication: HIV INFECTION
     Dosage: 1 DF, BID
     Route: 048
     Dates: start: 20120315, end: 20130508
  25. ELMIRON [Suspect]
     Active Substance: PENTOSAN POLYSULFATE SODIUM
     Indication: CYSTITIS ULCERATIVE
     Dosage: 100 MG BID FROM 05 MARCH 2013 TO 27 MAY 2013
     Route: 048
     Dates: start: 20120711, end: 20130527
  26. CYMBALTA [Suspect]
     Active Substance: DULOXETINE HYDROCHLORIDE
     Indication: BLADDER CANCER
     Route: 048
     Dates: start: 20121101, end: 20130325
  27. VITAMIN (NOS) [Concomitant]
  28. PENTOSAN POLYSULFATE SODIUM [Suspect]
     Active Substance: PENTOSAN POLYSULFATE SODIUM
     Indication: NIGHT SWEATS
  29. ACETAMINOPHEN/OXYCODONE HYDROCHLORIDE [Concomitant]
     Indication: PRODUCT USED FOR UNKNOWN INDICATION
  30. DARIFENACIN HYDROBROMIDE. [Suspect]
     Active Substance: DARIFENACIN HYDROBROMIDE
     Indication: PROSTATITIS
     Dosage: 7.5 MG, 1D
     Route: 048

REACTIONS (3)
  - Cystitis [None]
  - Ulcer [None]
  - Neutropenia [Recovered/Resolved]

NARRATIVE: CASE EVENT DATE: 20121218
